FAERS Safety Report 9554759 (Version 1)
Quarter: 2013Q3

REPORT INFORMATION
  Report Type: Report from Study
  Country: US (occurrence: US)
  Receive Date: 20130926
  Receipt Date: 20130926
  Transmission Date: 20140515
  Serious: Yes (Hospitalization)
  Sender: FDA-Public Use
  Company Number: US-ROCHE-1279989

PATIENT
  Age: 28 Year
  Sex: Female
  Weight: 55.45 kg

DRUGS (3)
  1. BEVACIZUMAB [Suspect]
     Indication: CERVIX CARCINOMA
     Dosage: OVER 30-90 MIN ON DAY 2, CYCLE 1
     Route: 042
     Dates: start: 20100510
  2. PACLITAXEL [Suspect]
     Indication: CERVIX CARCINOMA
     Dosage: OVER 3 HRS ON DAY 1, CYCLE 1
     Route: 042
     Dates: start: 20100510
  3. CISPLATIN [Suspect]
     Indication: CERVIX CARCINOMA
     Dosage: ON DAY 2, CYCLE 1
     Route: 042
     Dates: start: 20100510

REACTIONS (6)
  - Diarrhoea [Recovered/Resolved]
  - Hypokalaemia [Recovered/Resolved]
  - Pyrexia [Recovered/Resolved]
  - Colitis [Recovered/Resolved]
  - Vomiting [Recovered/Resolved]
  - Anaemia [Recovered/Resolved]
